FAERS Safety Report 8986640 (Version 1)
Quarter: 2012Q4

REPORT INFORMATION
  Report Type: 
  Country: US (occurrence: US)
  Receive Date: 20121226
  Receipt Date: 20121226
  Transmission Date: 20130627
  Serious: No
  Sender: FDA-Public Use
  Company Number: US-009507513-1212USA006649

PATIENT

DRUGS (1)
  1. SIMVASTATIN TABLETS, USP [Suspect]
     Indication: BLOOD CHOLESTEROL
     Dosage: 40 mg, qd
     Route: 048
     Dates: start: 2006, end: 201012

REACTIONS (4)
  - Fall [Recovering/Resolving]
  - Balance disorder [Recovering/Resolving]
  - Muscle atrophy [Recovering/Resolving]
  - Inclusion body myositis [Recovering/Resolving]
